FAERS Safety Report 9867849 (Version 1)
Quarter: 2014Q1

REPORT INFORMATION
  Report Type: Report from Study
  Country: US (occurrence: US)
  Receive Date: 20140204
  Receipt Date: 20140204
  Transmission Date: 20141002
  Serious: Yes (Other)
  Sender: FDA-Public Use
  Company Number: US-ROCHE-1341768

PATIENT
  Sex: Male
  Weight: 61.03 kg

DRUGS (4)
  1. NUTROPIN AQ [Suspect]
     Indication: GROWTH HORMONE DEFICIENCY
     Dosage: 6 WEEKS
     Route: 058
  2. NUTROPIN AQ [Suspect]
     Route: 058
     Dates: start: 20130916
  3. HUMATROPE [Concomitant]
     Dosage: INJET 6 TIMES PER WEEK , EVERY WEEK
     Route: 065
     Dates: start: 20080807
  4. LETROZOLE [Concomitant]

REACTIONS (3)
  - Tremor [Unknown]
  - Vitamin D decreased [Unknown]
  - Dizziness [Unknown]
